FAERS Safety Report 23831561 (Version 2)
Quarter: 2024Q3

REPORT INFORMATION
  Report Type: Spontaneous
  Country: CA (occurrence: CA)
  Receive Date: 20240508
  Receipt Date: 20240911
  Transmission Date: 20241017
  Serious: Yes (Hospitalization, Other)
  Sender: BAUSCH AND LOMB
  Company Number: CA-BAUSCH-BL-2024-007218

PATIENT
  Age: 68 Year
  Sex: Male

DRUGS (7)
  1. DEXAMETHASONE [Suspect]
     Active Substance: DEXAMETHASONE
     Indication: Product used for unknown indication
     Route: 065
  2. CISPLATIN [Suspect]
     Active Substance: CISPLATIN
     Indication: Product used for unknown indication
     Route: 065
  3. CYTARABINE [Suspect]
     Active Substance: CYTARABINE
     Indication: Product used for unknown indication
     Dosage: POWDER FOR SOLUTION INTRATHECAL
     Route: 037
  4. IMBRUVICA [Suspect]
     Active Substance: IBRUTINIB
     Indication: Mantle cell lymphoma
     Route: 048
  5. RITUXIMAB [Suspect]
     Active Substance: RITUXIMAB
     Indication: Product used for unknown indication
     Route: 065
  6. CYCLOPHOSPHAMIDE;DOXORUBICIN;ETOPOSIDE;VINCRISTINE [Concomitant]
     Indication: Product used for unknown indication
     Dosage: CYCLOPHOSPHAMIDE;DOXORUBICIN;ETOPOSIDE;VINCRISTINE
  7. CYCLOPHOSPHAMIDE;DOXORUBICIN;ETOPOSIDE;VINCRISTINE [Concomitant]
     Dosage: CYCLOPHOSPHAMIDE/DOXORUBICIN HYDROCHLORIDE/PREDNISONE/RITUXIMAB/VINCRISTINE SULFATE

REACTIONS (5)
  - Hospitalisation [Not Recovered/Not Resolved]
  - Asthenia [Not Recovered/Not Resolved]
  - Ligament sprain [Not Recovered/Not Resolved]
  - Palpitations [Not Recovered/Not Resolved]
  - Nausea [Not Recovered/Not Resolved]
